FAERS Safety Report 5363068-4 (Version None)
Quarter: 2007Q2

REPORT INFORMATION
  Report Type: 
  Country: None (occurrence: None)
  Receive Date: 20070615
  Receipt Date: 20070605
  Transmission Date: 20071010
  Serious: Yes (Hospitalization)
  Sender: FDA-Public Use
  Company Number: 163-20785-07060440

PATIENT
  Age: 64 Year
  Sex: Female

DRUGS (3)
  1. THALOMID [Suspect]
     Indication: MULTIPLE MYELOMA
     Dosage: SEE IMAGE
     Route: 048
     Dates: start: 20070101
  2. THALOMID [Suspect]
     Indication: MULTIPLE MYELOMA
     Dosage: SEE IMAGE
     Route: 048
     Dates: start: 20070103
  3. REVLIMID [Suspect]
     Indication: MULTIPLE MYELOMA
     Dosage: 10-15MG, DAILY, ORAL
     Route: 048
     Dates: start: 20061206, end: 20070101

REACTIONS (3)
  - MULTIPLE MYELOMA [None]
  - RENAL FAILURE [None]
  - URINARY TRACT INFECTION [None]
